FAERS Safety Report 24189920 (Version 2)
Quarter: 2025Q2

REPORT INFORMATION
  Report Type: Spontaneous
  Country: JP (occurrence: JP)
  Receive Date: 20240808
  Receipt Date: 20250404
  Transmission Date: 20250716
  Serious: Yes (Life-Threatening, Other)
  Sender: REGENERON
  Company Number: JP-REGENERON PHARMACEUTICALS, INC.-2024-107604

PATIENT
  Age: 59 Year
  Sex: Female

DRUGS (1)
  1. LIBTAYO [Suspect]
     Active Substance: CEMIPLIMAB-RWLC
     Indication: Cervix carcinoma recurrent
     Dosage: 350 MG, Q3W
     Dates: end: 20250307

REACTIONS (3)
  - Disease progression [Unknown]
  - Umbilical haemorrhage [Recovering/Resolving]
  - Malignant melanoma [Unknown]

NARRATIVE: CASE EVENT DATE: 20240801
